FAERS Safety Report 4354773-7 (Version None)
Quarter: 2004Q2

REPORT INFORMATION
  Report Type: 
  Country: None (occurrence: None)
  Receive Date: 20040507
  Receipt Date: 20031204
  Transmission Date: 20050107
  Serious: Yes (Hospitalization)
  Sender: FDA-Public Use
  Company Number: JP-MERCK-0312USA02086

PATIENT
  Age: 7 Year
  Sex: Male
  Weight: 22 kg

DRUGS (5)
  1. FOSAMAX [Suspect]
     Indication: OSTEOPOROSIS
     Route: 048
     Dates: start: 20030619, end: 20031106
  2. CYCLOSPORINE [Suspect]
     Indication: JUVENILE ARTHRITIS
     Route: 065
     Dates: end: 20030827
  3. CYCLOSPORINE [Suspect]
     Route: 065
     Dates: start: 20030828
  4. IBUPROFEN [Concomitant]
     Indication: JUVENILE ARTHRITIS
     Route: 065
  5. PREDNISOLONE [Concomitant]
     Indication: JUVENILE ARTHRITIS
     Route: 065

REACTIONS (5)
  - CONDITION AGGRAVATED [None]
  - DRUG LEVEL DECREASED [None]
  - JUVENILE ARTHRITIS [None]
  - MEDICATION ERROR [None]
  - PRESCRIBED OVERDOSE [None]
